FAERS Safety Report 10064709 (Version 1)
Quarter: 2014Q2

REPORT INFORMATION
  Report Type: Spontaneous
  Country: GB (occurrence: GB)
  Receive Date: 20140408
  Receipt Date: 20140408
  Transmission Date: 20141212
  Serious: Yes (Other)
  Sender: FDA-Public Use
  Company Number: GB-MERCK-1404GBR004388

PATIENT
  Age: 86 Year
  Sex: Female
  Weight: 77 kg

DRUGS (16)
  1. SITAGLIPTIN PHOSPHATE [Suspect]
     Indication: TYPE 2 DIABETES MELLITUS
     Dosage: 100MG DAILY FOR 3 MONTHS THEN 50 MG DAILY.
     Route: 048
     Dates: start: 20130319, end: 20131017
  2. ADCAL-D3 [Concomitant]
  3. ALENDRONATE SODIUM [Concomitant]
  4. ASPIRIN [Concomitant]
     Route: 048
  5. FERROUS FUMARATE [Concomitant]
  6. GLIPIZIDE [Concomitant]
  7. IRBESARTAN [Concomitant]
  8. LETROZOLE [Concomitant]
  9. LEVOTHYROXINE SODIUM [Concomitant]
     Route: 048
  10. OMEPRAZOLE [Concomitant]
  11. PREDNISOLONE [Concomitant]
  12. QUINIDINE SULFATE [Concomitant]
  13. SIMVASTATIN [Concomitant]
  14. AMLODIPINE [Concomitant]
  15. ATENOLOL [Concomitant]
  16. METFORMIN [Concomitant]

REACTIONS (3)
  - Pancreatic carcinoma [Not Recovered/Not Resolved]
  - Back pain [Unknown]
  - Hepatic function abnormal [Unknown]
